FAERS Safety Report 21943898 (Version 1)
Quarter: 2023Q1

REPORT INFORMATION
  Report Type: Spontaneous
  Country: DE (occurrence: DE)
  Receive Date: 20230202
  Receipt Date: 20230202
  Transmission Date: 20230418
  Serious: Yes (Hospitalization)
  Sender: FDA-Public Use
  Company Number: DE-OTSUKA-2022_050880

PATIENT
  Age: 56 Year
  Sex: Male

DRUGS (8)
  1. CLOZAPINE [Suspect]
     Active Substance: CLOZAPINE
     Indication: Product used for unknown indication
     Dosage: 200 MG, QD (FOR YEARS B.A.W. (POSSIBLY)
     Route: 048
  2. ARIPIPRAZOLE [Suspect]
     Active Substance: ARIPIPRAZOLE
     Indication: Product used for unknown indication
     Dosage: 30 MG, QD (SINCE YEARS)
     Route: 048
     Dates: end: 20220714
  3. ARIPIPRAZOLE [Suspect]
     Active Substance: ARIPIPRAZOLE
     Dosage: 20 MG, QD
     Route: 048
     Dates: end: 20220717
  4. ARIPIPRAZOLE [Suspect]
     Active Substance: ARIPIPRAZOLE
     Dosage: 10 MG, QD
     Route: 048
     Dates: end: 20220722
  5. RAMIPRIL [Concomitant]
     Active Substance: RAMIPRIL
     Indication: Product used for unknown indication
     Dosage: 5 MG, QD (FOR YEARS B.A.W. (POSSIBLY)
     Route: 048
  6. VALPROIC ACID [Concomitant]
     Active Substance: VALPROIC ACID
     Indication: Product used for unknown indication
     Dosage: 1300 MG, QD (FOR YEARS B.A.W. (POSSIBLY)
     Route: 048
  7. Tavor [Concomitant]
     Indication: Product used for unknown indication
     Dosage: 2 MG, QD (FOR YEARS B.A.W. (POSSIBLY)
     Route: 048
  8. TORSEMIDE [Concomitant]
     Active Substance: TORSEMIDE
     Indication: Product used for unknown indication
     Dosage: 5 MG, QD(FOR YEARS B.A.W. (POSSIBLY)
     Route: 048

REACTIONS (6)
  - Dyskinesia [Recovered/Resolved]
  - Muscle spasms [Unknown]
  - Pain [Unknown]
  - Balance disorder [Unknown]
  - C-reactive protein increased [Unknown]
  - Hyponatraemia [Unknown]

NARRATIVE: CASE EVENT DATE: 20220622
